FAERS Safety Report 15274472 (Version 1)
Quarter: 2018Q3

REPORT INFORMATION
  Report Type: Spontaneous
  Country: AU (occurrence: AU)
  Receive Date: 20180814
  Receipt Date: 20180814
  Transmission Date: 20181010
  Serious: Yes (Other)
  Sender: FDA-Public Use
  Company Number: AU-ASTRAZENECA-2018SE91890

PATIENT
  Age: 864 Month
  Sex: Male
  Weight: 93 kg

DRUGS (15)
  1. BYDUREON [Suspect]
     Active Substance: EXENATIDE
     Indication: TYPE 2 DIABETES MELLITUS
     Route: 058
  2. BYDUREON [Suspect]
     Active Substance: EXENATIDE
     Indication: TYPE 2 DIABETES MELLITUS
     Route: 058
     Dates: start: 201804
  3. MINIPRESS [Concomitant]
     Active Substance: PRAZOSIN HYDROCHLORIDE
  4. ALODORM [Concomitant]
     Active Substance: NITRAZEPAM
  5. ENDONE [Concomitant]
     Active Substance: OXYCODONE HYDROCHLORIDE
  6. MOGADON [Concomitant]
     Active Substance: NITRAZEPAM
  7. CYMBALTA [Concomitant]
     Active Substance: DULOXETINE HYDROCHLORIDE
  8. GLICLAZIDE [Concomitant]
     Active Substance: GLICLAZIDE
  9. NIFEDIPINE. [Concomitant]
     Active Substance: NIFEDIPINE
  10. XALATAN [Concomitant]
     Active Substance: LATANOPROST
  11. ROSUVASTATIN. [Concomitant]
     Active Substance: ROSUVASTATIN
  12. OLANZAPINE. [Concomitant]
     Active Substance: OLANZAPINE
  13. VOLTAREN [Suspect]
     Active Substance: DICLOFENAC SODIUM
     Route: 065
  14. FORXIGA [Concomitant]
     Active Substance: DAPAGLIFLOZIN
  15. METFORMIN HYDROCHLORIDE. [Concomitant]
     Active Substance: METFORMIN HYDROCHLORIDE

REACTIONS (2)
  - Injection site haemorrhage [Unknown]
  - Vascular injury [Unknown]

NARRATIVE: CASE EVENT DATE: 201804
